FAERS Safety Report 5278119-5 (Version None)
Quarter: 2007Q1

REPORT INFORMATION
  Report Type: 
  Country: None (occurrence: None)
  Receive Date: 20061213
  Receipt Date: 20051103
  Transmission Date: 20070707
  Serious: Yes (Life-Threatening, Hospitalization)
  Sender: FDA-Public Use
  Company Number: 2005UW11318

PATIENT
  Age: 48 Year
  Sex: Male
  Weight: 106.5953 kg

DRUGS (4)
  1. SEROQUEL [Suspect]
     Indication: SCHIZOPHRENIA
     Dosage: 600 MG HS PO
     Route: 048
     Dates: start: 20050620, end: 20050709
  2. ISONIAZID [Suspect]
     Dosage: 900 MG BIWK PO
     Route: 048
     Dates: start: 20050420
  3. VITAMIN B6 [Concomitant]
  4. VITAMIN CAP [Concomitant]

REACTIONS (1)
  - DIABETIC KETOACIDOSIS [None]
